FAERS Safety Report 14385070 (Version 1)
Quarter: 2018Q1

REPORT INFORMATION
  Report Type: Spontaneous
  Country: IN (occurrence: IN)
  Receive Date: 20180115
  Receipt Date: 20180115
  Transmission Date: 20180509
  Serious: Yes (Other)
  Sender: FDA-Public Use
  Company Number: IN-GLENMARK PHARMACEUTICALS-2017GMK030627

PATIENT
  Age: 19 Year
  Sex: Male

DRUGS (3)
  1. LIDOCAINE. [Suspect]
     Active Substance: LIDOCAINE
     Indication: ANAESTHESIA
     Dosage: UNK, 3 MM OF 1:1000 ADRENALINE (3 MG) WAS ADDED IN A 30 ML VIAL OF 4% LIDOCAINE
     Route: 061
  2. EPINEPHRINE. [Suspect]
     Active Substance: EPINEPHRINE
     Indication: ANAESTHESIA
     Dosage: UNK, 3 MM OF 1:1000 ADRENALINE (3 MG) WAS ADDED IN A 30 ML VIAL OF 4% LIDOCAINE
     Route: 061
  3. RINGER?S LACTATE [Concomitant]
     Indication: PRODUCT USED FOR UNKNOWN INDICATION
     Dosage: UNK
     Route: 042

REACTIONS (2)
  - Brain stem syndrome [Unknown]
  - Anaesthetic complication [Unknown]
